FAERS Safety Report 12707710 (Version 1)
Quarter: 2016Q3

REPORT INFORMATION
  Report Type: Report from Study
  Country: KR (occurrence: KR)
  Receive Date: 20160901
  Receipt Date: 20160901
  Transmission Date: 20161109
  Serious: Yes (Hospitalization)
  Sender: FDA-Public Use
  Company Number: KR-CELLTRION INC.-2016KR004218

PATIENT

DRUGS (11)
  1. CELEBREX [Concomitant]
     Active Substance: CELECOXIB
     Indication: ARTHRITIS
     Dosage: 1 DF, BID
     Route: 048
     Dates: start: 20131125
  2. METHOTREXATE (METHOTREXATE SODIUM) [Concomitant]
     Active Substance: METHOTREXATE SODIUM
     Indication: ARTHRITIS
     Dosage: 5 DF, DAILY
     Route: 048
     Dates: start: 20131125
  3. BONJENIC [Concomitant]
     Indication: OSTEOPOROSIS
     Dosage: 1 DF, DAILY
     Route: 048
     Dates: start: 20140429
  4. REMSIMA [Suspect]
     Active Substance: INFLIXIMAB
     Indication: RHEUMATOID ARTHRITIS
     Dosage: 200 MG, ACCORDING TO THE APPROVED LABEL
     Route: 042
     Dates: start: 20140829, end: 20140829
  5. REMSIMA [Suspect]
     Active Substance: INFLIXIMAB
     Dosage: 200 UNK, UNK
     Route: 042
     Dates: start: 20150202, end: 20150202
  6. ULTRACET SEMI [Concomitant]
     Indication: FIBROMYALGIA
     Dosage: 1 DF, BID
     Route: 048
     Dates: start: 20141007
  7. ETRAVIL [Concomitant]
     Active Substance: AMITRIPTYLINE HYDROCHLORIDE
     Indication: FIBROMYALGIA
     Dosage: 1 DF, DAILY
     Route: 048
     Dates: start: 20141007
  8. KANARB [Concomitant]
     Indication: HYPERTENSION
     Dosage: 1 DF, DAILY
     Route: 048
     Dates: start: 20140519
  9. FOLIC ACID. [Concomitant]
     Active Substance: FOLIC ACID
     Indication: ADVERSE DRUG REACTION
     Dosage: 1 DF, DAILY
     Route: 048
     Dates: start: 20131216
  10. LANSTON [Concomitant]
     Active Substance: LANSOPRAZOLE
     Indication: OESOPHAGITIS
     Dosage: 1 DF, DAILY
     Route: 048
     Dates: start: 20131223
  11. CAVID CHEW [Concomitant]
     Indication: OSTEOPOROSIS
     Dosage: 1 DF, DAILY
     Route: 048
     Dates: start: 20140619

REACTIONS (2)
  - Fall [Recovered/Resolved]
  - Subarachnoid haemorrhage [Recovered/Resolved]

NARRATIVE: CASE EVENT DATE: 20150125
